FAERS Safety Report 8585657 (Version 2)
Quarter: 2014Q2

REPORT INFORMATION
  Report Type: Spontaneous
  Country: US (occurrence: US)
  Receive Date: 20120530
  Receipt Date: 20140530
  Transmission Date: 20141212
  Serious: No
  Sender: FDA-Public Use
  Company Number: US-GLAXOSMITHKLINE-A0961461A

PATIENT
  Age: 6 Year
  Sex: Female
  Weight: 14.6 kg

DRUGS (6)
  1. FLOLAN [Suspect]
     Indication: PULMONARY ARTERIAL HYPERTENSION
     Dosage: 167.2NGKM UNKNOWN
     Route: 065
     Dates: start: 20090327
  2. DIGOXIN [Concomitant]
     Dosage: 50MCG TWICE PER DAY
  3. FUROSEMIDE [Concomitant]
     Dosage: 10MG PER DAY
  4. REVATIO [Concomitant]
     Dosage: 30MG THREE TIMES PER DAY
  5. TRACLEER [Concomitant]
     Dosage: 31.25MG TWICE PER DAY
  6. WARFARIN [Concomitant]
     Dosage: .5MG PER DAY

REACTIONS (3)
  - Musculoskeletal pain [Not Recovered/Not Resolved]
  - Fatigue [Not Recovered/Not Resolved]
  - Ear infection [Unknown]
